FAERS Safety Report 14916086 (Version 3)
Quarter: 2018Q2

REPORT INFORMATION
  Report Type: Spontaneous
  Country: US (occurrence: US)
  Receive Date: 20180518
  Receipt Date: 20180618
  Transmission Date: 20180711
  Serious: Yes (Hospitalization, Other)
  Sender: FDA-Public Use
  Company Number: US-VIIV HEALTHCARE LIMITED-US2018088744

PATIENT
  Age: 54 Year
  Sex: Male

DRUGS (6)
  1. DEMEROL [Concomitant]
     Active Substance: MEPERIDINE HYDROCHLORIDE
  2. GABAPENTIN. [Concomitant]
     Active Substance: GABAPENTIN
  3. FENTANYL. [Concomitant]
     Active Substance: FENTANYL
  4. TIVICAY [Interacting]
     Active Substance: DOLUTEGRAVIR SODIUM
     Indication: HIV INFECTION
     Dosage: 50 MG, 1D
     Route: 048
  5. NORCO [Concomitant]
     Active Substance: ACETAMINOPHEN\HYDROCODONE BITARTRATE
  6. EPZICOM [Suspect]
     Active Substance: ABACAVIR SULFATE\LAMIVUDINE
     Indication: HIV INFECTION
     Dosage: UNK UNK, 1D
     Route: 048

REACTIONS (11)
  - Migraine [Not Recovered/Not Resolved]
  - Tremor [Recovered/Resolved]
  - Hodgkin^s disease stage IV [Recovered/Resolved]
  - Drug interaction [Unknown]
  - Pain [Recovered/Resolved]
  - Malaise [Unknown]
  - Chills [Recovered/Resolved]
  - Cancer in remission [Unknown]
  - Hospitalisation [Recovered/Resolved]
  - Neuropathy peripheral [Not Recovered/Not Resolved]
  - Paraesthesia [Unknown]

NARRATIVE: CASE EVENT DATE: 2014
